FAERS Safety Report 4590888-6 (Version None)
Quarter: 2005Q1

REPORT INFORMATION
  Report Type: 
  Country: None (occurrence: None)
  Receive Date: 20050225
  Receipt Date: 20040831
  Transmission Date: 20050727
  Serious: No
  Sender: FDA-Public Use
  Company Number: US-GLAXOSMITHKLINE-A0524391A

PATIENT
  Age: 44 Year
  Sex: Male

DRUGS (5)
  1. ZIAGEN [Suspect]
     Indication: HIV INFECTION
     Route: 065
  2. BACTRIM DS [Suspect]
     Route: 048
     Dates: start: 20040624, end: 20040723
  3. TRIZIVIR [Suspect]
     Indication: HIV INFECTION
     Route: 048
     Dates: start: 20040624, end: 20040722
  4. KALETRA [Suspect]
     Indication: HIV INFECTION
     Route: 048
     Dates: start: 20040624, end: 20040722
  5. AZITHROMYCIN [Concomitant]
     Indication: TUBERCULOSIS PROPHYLAXIS
     Dosage: 1200MG WEEKLY
     Route: 048
     Dates: start: 20040624

REACTIONS (5)
  - HYPERSENSITIVITY [None]
  - MALAISE [None]
  - PAIN [None]
  - PYREXIA [None]
  - RASH [None]
